FAERS Safety Report 14497040 (Version 1)
Quarter: 2018Q1

REPORT INFORMATION
  Report Type: Spontaneous
  Country: US (occurrence: US)
  Receive Date: 20180207
  Receipt Date: 20180207
  Transmission Date: 20180509
  Serious: No
  Sender: FDA-Public Use
  Company Number: None

PATIENT
  Age: 78 Year
  Sex: Female
  Weight: 65.77 kg

DRUGS (20)
  1. EZETIMIBE. [Concomitant]
     Active Substance: EZETIMIBE
  2. VITAMIN B COMPLEX [Concomitant]
     Active Substance: CYANOCOBALAMIN\DEXPANTHENOL\NIACINAMIDE\PYRIDOXINE HYDROCHLORIDE\RIBOFLAVIN 5^-PHOSPHATE SODIUM\THIAMINE HYDROCHLORIDE\VITAMIN B COMPLEX
  3. DESONIDE. [Concomitant]
     Active Substance: DESONIDE
  4. DILTIAZEM. [Concomitant]
     Active Substance: DILTIAZEM
  5. PREDNISONE. [Concomitant]
     Active Substance: PREDNISONE
  6. CLOBETASOL [Concomitant]
     Active Substance: CLOBETASOL
  7. DOXEPIN [Concomitant]
     Active Substance: DOXEPIN
  8. FOLIC ACID. [Concomitant]
     Active Substance: FOLIC ACID
  9. 5 STRAIN PROBIOTIC [Concomitant]
  10. ORENCIA [Concomitant]
     Active Substance: ABATACEPT
  11. LINZESS [Concomitant]
     Active Substance: LINACLOTIDE
  12. METHOTREXATE. [Concomitant]
     Active Substance: METHOTREXATE
  13. PROTONIX [Concomitant]
     Active Substance: PANTOPRAZOLE SODIUM
  14. KETOCONAZOLE. [Concomitant]
     Active Substance: KETOCONAZOLE
  15. AVALIDE [Concomitant]
     Active Substance: HYDROCHLOROTHIAZIDE\IRBESARTAN
  16. ALIGN [Concomitant]
     Active Substance: BIFIDOBACTERIUM LONGUM SUBSP. INFANTIS
  17. VITAMIN B12 [Concomitant]
     Active Substance: CYANOCOBALAMIN
  18. HYDROCODONE-ACETAMINOPHEN 10-325MG [Suspect]
     Active Substance: ACETAMINOPHEN\HYDROCODONE
     Indication: RHEUMATOID ARTHRITIS
     Dosage: 2 PILLS Q 8 HOURS MOUTH
     Route: 048
  19. ROSUVASTATIN. [Concomitant]
     Active Substance: ROSUVASTATIN
  20. VITAMIN D3 [Concomitant]
     Active Substance: CHOLECALCIFEROL

REACTIONS (6)
  - Palpitations [None]
  - Burning sensation [None]
  - Drug ineffective [None]
  - Muscle spasms [None]
  - Nausea [None]
  - Product substitution issue [None]

NARRATIVE: CASE EVENT DATE: 20171224
